FAERS Safety Report 11804277 (Version 1)
Quarter: 2015Q4

REPORT INFORMATION
  Report Type: Spontaneous
  Country: JP (occurrence: JP)
  Receive Date: 20151204
  Receipt Date: 20151204
  Transmission Date: 20160305
  Serious: Yes (Hospitalization)
  Sender: FDA-Public Use
  Company Number: JP-JNJFOC-20151127045

PATIENT
  Age: 8 Decade
  Sex: Male

DRUGS (2)
  1. HALOPERIDOL. [Suspect]
     Active Substance: HALOPERIDOL
     Indication: ALCOHOL WITHDRAWAL SYNDROME
     Route: 042
  2. RISPERDAL [Suspect]
     Active Substance: RISPERIDONE
     Indication: ALCOHOL WITHDRAWAL SYNDROME
     Route: 048

REACTIONS (3)
  - Hypercapnia [Unknown]
  - Product use issue [Unknown]
  - Off label use [Unknown]
